FAERS Safety Report 19356514 (Version 1)
Quarter: 2021Q2

REPORT INFORMATION
  Report Type: Spontaneous
  Country: US (occurrence: US)
  Receive Date: 20210601
  Receipt Date: 20210601
  Transmission Date: 20210717
  Serious: Yes (Hospitalization)
  Sender: FDA-Public Use
  Company Number: None

PATIENT
  Age: 80 Year
  Sex: Female

DRUGS (1)
  1. TOBRAMYCIN (56AMPS/28DAY) 300MG/5ML LUPIN PHARMACEUTICALS [Suspect]
     Active Substance: TOBRAMYCIN
     Indication: ASTHMA
     Dosage: ?          OTHER DOSE:300MG/5ML ;?
     Route: 055
     Dates: start: 202003

REACTIONS (1)
  - Hip fracture [None]

NARRATIVE: CASE EVENT DATE: 20210407
